FAERS Safety Report 7387056-1 (Version None)
Quarter: 2011Q1

REPORT INFORMATION
  Report Type: 
  Country: None (occurrence: None)
  Receive Date: 20110331
  Receipt Date: 20110322
  Transmission Date: 20110831
  Serious: Yes (Hospitalization, Disabling, Other)
  Sender: FDA-Public Use
  Company Number: US-MERCK-1004USA04607

PATIENT
  Age: 65 Year
  Sex: Female
  Weight: 81 kg

DRUGS (8)
  1. MAGNESIUM (UNSPECIFIED) [Concomitant]
     Route: 048
  2. ZOCOR [Concomitant]
     Route: 048
     Dates: start: 19961030, end: 20090622
  3. UBIDECARENONE [Concomitant]
     Route: 065
  4. VITAMINS (UNSPECIFIED) [Concomitant]
     Route: 065
  5. FOSAMAX [Suspect]
     Indication: OSTEOPENIA
     Route: 048
     Dates: start: 20010101, end: 20060601
  6. CALCIUM (UNSPECIFIED) [Concomitant]
     Route: 065
  7. CALCIUM (UNSPECIFIED) AND VITAMIN D (UNSPECIFIED) [Concomitant]
     Route: 065
  8. OMEGA-3 ACID ETHYL ESTERS [Concomitant]
     Route: 048

REACTIONS (48)
  - TYPE 2 DIABETES MELLITUS [None]
  - GROIN PAIN [None]
  - FALL [None]
  - HERPES ZOSTER [None]
  - SLEEP APNOEA SYNDROME [None]
  - HAEMATOCHEZIA [None]
  - ANAEMIA [None]
  - ABDOMINAL PAIN UPPER [None]
  - POSTMENOPAUSAL HAEMORRHAGE [None]
  - FEMUR FRACTURE [None]
  - DYSFUNCTIONAL UTERINE BLEEDING [None]
  - STRESS FRACTURE [None]
  - LOW TURNOVER OSTEOPATHY [None]
  - BONE DISORDER [None]
  - EYELID PTOSIS [None]
  - MUSCULOSKELETAL PAIN [None]
  - COUGH [None]
  - ACROCHORDON [None]
  - ARTHRALGIA [None]
  - CAUDA EQUINA SYNDROME [None]
  - CYSTITIS [None]
  - CHEST PAIN [None]
  - GLAUCOMA [None]
  - EAR PAIN [None]
  - SPINAL DISORDER [None]
  - ADENOIDAL DISORDER [None]
  - DIZZINESS [None]
  - HYPOTHYROIDISM [None]
  - PEPTIC ULCER [None]
  - HAEMORRHOIDS [None]
  - INFECTION [None]
  - ARTHROPATHY [None]
  - MALIGNANT HISTIOCYTOSIS [None]
  - THYROID NEOPLASM [None]
  - PELVIC PAIN [None]
  - DRY SKIN [None]
  - CARPAL TUNNEL SYNDROME [None]
  - ANAEMIA POSTOPERATIVE [None]
  - INTERVERTEBRAL DISC DEGENERATION [None]
  - OSTEOPOROSIS [None]
  - MELANOCYTIC NAEVUS [None]
  - BACK PAIN [None]
  - SPINAL OSTEOARTHRITIS [None]
  - INTERVERTEBRAL DISC PROTRUSION [None]
  - FRACTURE NONUNION [None]
  - SINUS DISORDER [None]
  - DRUG HYPERSENSITIVITY [None]
  - PAIN IN EXTREMITY [None]
